FAERS Safety Report 19719174 (Version 2)
Quarter: 2021Q3

REPORT INFORMATION
  Report Type: Report from Study
  Country: US (occurrence: US)
  Receive Date: 20210819
  Receipt Date: 20210820
  Transmission Date: 20211014
  Serious: Yes (Hospitalization)
  Sender: FDA-Public Use
  Company Number: US-TAIHO ONCOLOGY  INC-EU-2021-02594

PATIENT
  Age: 72 Year
  Sex: Male

DRUGS (6)
  1. LONSURF [Suspect]
     Active Substance: TIPIRACIL HYDROCHLORIDE\TRIFLURIDINE
     Indication: RECTAL CANCER
     Dosage: CURRENT CYCLE UNKNOWN
     Route: 048
     Dates: start: 20210708
  2. ELIQUIS [Concomitant]
     Active Substance: APIXABAN
  3. LONSURF [Suspect]
     Active Substance: TIPIRACIL HYDROCHLORIDE\TRIFLURIDINE
     Dosage: LONSURF RESTARTED (DOSE, FREQUENCY AND CYCLE UNKNOWN)
     Route: 048
     Dates: start: 20210810
  4. METOPROLOL. [Concomitant]
     Active Substance: METOPROLOL
  5. ELIQUIS [Concomitant]
     Active Substance: APIXABAN
  6. AMLODIPINE [Concomitant]
     Active Substance: AMLODIPINE BESYLATE

REACTIONS (10)
  - Urinary tract infection [Recovered/Resolved]
  - Nephrostomy [Unknown]
  - Vessel puncture site swelling [Unknown]
  - Red blood cell count decreased [Unknown]
  - Dyspnoea [Unknown]
  - White blood cell count increased [Unknown]
  - Blood count abnormal [Unknown]
  - Muscular weakness [Unknown]
  - Haemorrhage urinary tract [Unknown]
  - Pain in extremity [Unknown]

NARRATIVE: CASE EVENT DATE: 2021
